FAERS Safety Report 7390019-3 (Version None)
Quarter: 2011Q1

REPORT INFORMATION
  Report Type: 
  Country: None (occurrence: None)
  Receive Date: 20110324
  Receipt Date: 20110314
  Transmission Date: 20110831
  Serious: Yes (Hospitalization)
  Sender: FDA-Public Use
  Company Number: UTC-005706

PATIENT
  Age: 69 Year
  Sex: Male
  Weight: 37 kg

DRUGS (3)
  1. REMODULIN [Suspect]
     Indication: PULMONARY HYPERTENSION
     Dosage: 44.64 UG/KG (0.031 UG/KG, 1 IN  1 MIN), INTRAVENOUS
     Route: 042
     Dates: start: 20100913
  2. REVATIO [Concomitant]
  3. COUMADIN [Concomitant]

REACTIONS (4)
  - CHILLS [None]
  - HEART RATE INCREASED [None]
  - OXYGEN SATURATION ABNORMAL [None]
  - OEDEMA PERIPHERAL [None]
